FAERS Safety Report 8601642-X (Version None)
Quarter: 2012Q3

REPORT INFORMATION
  Report Type: 
  Country: None (occurrence: None)
  Receive Date: 20120817
  Receipt Date: 20120808
  Transmission Date: 20120928
  Serious: Yes (Hospitalization)
  Sender: FDA-Public Use
  Company Number: US-ELI_LILLY_AND_COMPANY-US201208003060

PATIENT
  Age: 41 Year
  Sex: Female

DRUGS (15)
  1. CYMBALTA [Suspect]
     Indication: BIPOLAR I DISORDER
     Dosage: 90 MG, UNKNOWN
     Dates: start: 20100201
  2. ZANAFLEX [Concomitant]
  3. STOOL SOFTENER [Concomitant]
  4. CITRACAL [Concomitant]
  5. PROPRANOLOL [Concomitant]
  6. NEURONTIN [Concomitant]
  7. ZYRTEC [Concomitant]
  8. LAMICTAL [Concomitant]
  9. GLUCOSAMINE [Concomitant]
  10. NIACIN [Concomitant]
  11. CYMBALTA [Suspect]
     Dosage: 30 MG, QD
  12. SYNTHROID [Concomitant]
  13. MOBIC [Concomitant]
  14. ALLEGRA [Concomitant]
  15. CALCIUM [Concomitant]

REACTIONS (11)
  - TOOTHACHE [None]
  - FEELING ABNORMAL [None]
  - TARDIVE DYSKINESIA [None]
  - DRUG DETOXIFICATION [None]
  - INTENTIONAL DRUG MISUSE [None]
  - OFF LABEL USE [None]
  - PARAESTHESIA ORAL [None]
  - CONFUSIONAL STATE [None]
  - BRUXISM [None]
  - DRUG WITHDRAWAL SYNDROME [None]
  - PARAESTHESIA [None]
